FAERS Safety Report 25052238 (Version 2)
Quarter: 2025Q2

REPORT INFORMATION
  Report Type: Spontaneous
  Country: US (occurrence: US)
  Receive Date: 20250307
  Receipt Date: 20250429
  Transmission Date: 20250716
  Serious: Yes (Other)
  Sender: INTRABIO
  Company Number: US-IBO-202500048

PATIENT
  Age: 11 Year
  Sex: Female
  Weight: 23 kg

DRUGS (4)
  1. AQNEURSA [Suspect]
     Active Substance: ACETYLLEUCINE, L-
     Indication: Product used for unknown indication
     Route: 065
  2. PROTRIPTYLINE [Concomitant]
     Active Substance: PROTRIPTYLINE
     Indication: Product used for unknown indication
     Route: 065
  3. ADRABETADEX [Concomitant]
     Active Substance: ADRABETADEX
     Indication: Product used for unknown indication
     Route: 065
  4. MIGLUSTAT [Concomitant]
     Active Substance: MIGLUSTAT
     Indication: Product used for unknown indication
     Route: 065

REACTIONS (2)
  - Cataplexy [Not Recovered/Not Resolved]
  - Fatigue [Recovered/Resolved]
